FAERS Safety Report 6372157-7 (Version None)
Quarter: 2009Q3

REPORT INFORMATION
  Report Type: 
  Country: None (occurrence: None)
  Receive Date: 20090917
  Receipt Date: 20090904
  Transmission Date: 20100115
  Serious: Yes (Hospitalization)
  Sender: FDA-Public Use
  Company Number: ADR15742009

PATIENT
  Age: 53 Year
  Sex: Male

DRUGS (7)
  1. CITALOPRAM HYDROBROMIDE [Suspect]
     Indication: ANXIETY DISORDER
     Dosage: 20 MG, ORAL
     Route: 048
     Dates: start: 19990101, end: 20081213
  2. IBUPROFEN [Concomitant]
  3. CO-CODAMOL 2 DF [Concomitant]
  4. DIAZEPAM [Concomitant]
  5. LOTRIDERM [Concomitant]
  6. PEPTAC [Concomitant]
  7. SENNA 2 DF [Concomitant]

REACTIONS (1)
  - PERFORATED ULCER [None]
